FAERS Safety Report 20177199 (Version 2)
Quarter: 2023Q2

REPORT INFORMATION
  Report Type: Report from Study
  Country: AU (occurrence: AU)
  Receive Date: 20211213
  Receipt Date: 20230515
  Transmission Date: 20230722
  Serious: Yes (Other)
  Sender: FDA-Public Use
  Company Number: AU-NOVARTISPH-NVSC2021AU278376

PATIENT
  Sex: Male

DRUGS (2)
  1. TABRECTA [Suspect]
     Active Substance: CAPMATINIB
     Indication: Non-small cell lung cancer metastatic
     Dosage: 400 MG, BID
     Route: 065
     Dates: start: 20201126, end: 202103
  2. TABRECTA [Suspect]
     Active Substance: CAPMATINIB
     Dosage: 200 MG, BID
     Route: 065
     Dates: start: 202111, end: 20220203

REACTIONS (4)
  - Pain [Not Recovered/Not Resolved]
  - Oesophageal achalasia [Not Recovered/Not Resolved]
  - Gastrooesophageal reflux disease [Not Recovered/Not Resolved]
  - Drug intolerance [Not Recovered/Not Resolved]
